FAERS Safety Report 8162200-7 (Version None)
Quarter: 2012Q1

REPORT INFORMATION
  Report Type: 
  Country: None (occurrence: None)
  Receive Date: 20120224
  Receipt Date: 20111230
  Transmission Date: 20120608
  Serious: No
  Sender: FDA-Public Use
  Company Number: US-BRISTOL-MYERS SQUIBB COMPANY-16323347

PATIENT

DRUGS (7)
  1. METFORMIN HCL [Suspect]
  2. TRAZODONE HCL [Suspect]
  3. LISINOPRIL [Suspect]
  4. PRAVASTATIN SODIUM [Suspect]
  5. ALPRAZOLAM [Suspect]
  6. CYMBALTA [Suspect]
  7. MAXIDEX [Suspect]

REACTIONS (1)
  - NEUROPATHY PERIPHERAL [None]
